FAERS Safety Report 4377030-1 (Version None)
Quarter: 2004Q2

REPORT INFORMATION
  Report Type: 
  Country: None (occurrence: None)
  Receive Date: 20040614
  Receipt Date: 20040523
  Transmission Date: 20050107
  Serious: Yes (Death, Hospitalization)
  Sender: FDA-Public Use
  Company Number: IN-GLAXOSMITHKLINE-B0334251A

PATIENT
  Age: 28 Year
  Sex: Female
  Weight: 55 kg

DRUGS (4)
  1. TIMENTIN [Suspect]
     Indication: PNEUMOCOCCAL INFECTION
     Dosage: 3.1G FOUR TIMES PER DAY
     Route: 042
     Dates: start: 20040516, end: 20040519
  2. DOPAMINE + DOBUTAMINE [Concomitant]
     Indication: SHOCK
     Route: 042
     Dates: start: 20040518, end: 20040523
  3. LASIX [Concomitant]
     Dosage: 40MG UNKNOWN
     Route: 042
     Dates: start: 20040518
  4. PANTOPRAZOLE [Concomitant]
     Indication: PROPHYLAXIS
     Dosage: 40MG SIX TIMES PER DAY
     Route: 042
     Dates: start: 20040518, end: 20040523

REACTIONS (10)
  - ADVERSE DRUG REACTION [None]
  - ANAEMIA [None]
  - BLISTER [None]
  - BLOOD CREATININE INCREASED [None]
  - COMA [None]
  - HEPATITIS [None]
  - OEDEMA PERIPHERAL [None]
  - PLASMODIUM FALCIPARUM INFECTION [None]
  - RENAL FAILURE [None]
  - THROMBOCYTOPENIA [None]
